FAERS Safety Report 5283511-9 (Version None)
Quarter: 2007Q2

REPORT INFORMATION
  Report Type: 
  Country: None (occurrence: None)
  Receive Date: 20070402
  Receipt Date: 20070328
  Transmission Date: 20071010
  Serious: Yes (Other)
  Sender: FDA-Public Use
  Company Number: 2007SE01752

PATIENT
  Age: 71 Year
  Sex: Male

DRUGS (4)
  1. CRESTOR [Suspect]
     Indication: HYPERLIPIDAEMIA
     Route: 048
  2. CRESTOR [Suspect]
     Route: 048
  3. TILDIEM [Concomitant]
     Route: 048
  4. PLAVIX [Concomitant]
     Route: 048

REACTIONS (2)
  - HYPOTONIA [None]
  - MYALGIA [None]
